FAERS Safety Report 18575578 (Version 1)
Quarter: 2020Q4

REPORT INFORMATION
  Report Type: Spontaneous
  Country: FR (occurrence: FR)
  Receive Date: 20201203
  Receipt Date: 20201203
  Transmission Date: 20210114
  Serious: Yes (Hospitalization, Other)
  Sender: FDA-Public Use
  Company Number: FR-SA-2020SA343722

PATIENT

DRUGS (2)
  1. LEVETIRACETAM. [Suspect]
     Active Substance: LEVETIRACETAM
     Indication: DEPILATION
     Dosage: 1000 MG, QD
     Route: 041
     Dates: start: 20201017, end: 20201101
  2. LOVENOX [Suspect]
     Active Substance: ENOXAPARIN SODIUM
     Dosage: 20000 IU, QD
     Route: 058
     Dates: start: 20201017, end: 20201104

REACTIONS (4)
  - Cholestasis [Not Recovered/Not Resolved]
  - Condition aggravated [Recovering/Resolving]
  - Transaminases increased [Recovering/Resolving]
  - Bilirubin conjugated increased [Recovered/Resolved]

NARRATIVE: CASE EVENT DATE: 20201021
